FAERS Safety Report 7233096-2 (Version None)
Quarter: 2011Q1

REPORT INFORMATION
  Report Type: 
  Country: None (occurrence: None)
  Receive Date: 20110119
  Receipt Date: 20110107
  Transmission Date: 20110831
  Serious: Yes (Hospitalization)
  Sender: FDA-Public Use
  Company Number: PHHO2011FR00753

PATIENT
  Sex: Male
  Weight: 62 kg

DRUGS (4)
  1. ZOLEDRONATE [Suspect]
     Indication: METASTASES TO BONE
     Dosage: 4 MG, UNK
     Route: 042
  2. METHOTREXATE [Suspect]
     Indication: METASTASES TO BONE
     Dosage: 20 MG, UNK
     Route: 042
     Dates: start: 20100723
  3. CALCIUM [Concomitant]
     Indication: METASTASES TO BONE
  4. VITAMIN D [Concomitant]
     Indication: METASTASES TO BONE

REACTIONS (3)
  - ACINETOBACTER BACTERAEMIA [None]
  - PSEUDOMONAS INFECTION [None]
  - SEPSIS [None]
